FAERS Safety Report 8836274 (Version 2)
Quarter: 2012Q4

REPORT INFORMATION
  Report Type: 
  Country: IT (occurrence: IT)
  Receive Date: 20121011
  Receipt Date: 20121122
  Transmission Date: 20130627
  Serious: Yes (Hospitalization)
  Sender: FDA-Public Use
  Company Number: IT-ABBOTT-12P-083-0991005-00

PATIENT
  Age: 44 Year
  Sex: Female

DRUGS (5)
  1. KLACID [Suspect]
     Indication: BRONCHITIS
     Route: 048
     Dates: start: 20120912, end: 20120917
  2. KLACID [Suspect]
     Indication: UPPER RESPIRATORY TRACT INFECTION
  3. AUGMENTIN [Concomitant]
     Indication: BRONCHITIS
     Route: 048
     Dates: start: 20120917, end: 20120921
  4. EUTIROX [Concomitant]
  5. BENTELAN [Concomitant]
     Dosage: 3/die
     Dates: start: 20120917

REACTIONS (7)
  - Influenza [Unknown]
  - Pancreatitis acute [Recovered/Resolved]
  - Abdominal pain upper [Unknown]
  - Amylase increased [Recovered/Resolved]
  - Lipase increased [Recovered/Resolved]
  - Dysgeusia [Unknown]
  - Drug tolerance decreased [Unknown]
